FAERS Safety Report 6024736-4 (Version None)
Quarter: 2008Q4

REPORT INFORMATION
  Report Type: 
  Country: None (occurrence: None)
  Receive Date: 20081224
  Receipt Date: 20081217
  Transmission Date: 20090506
  Serious: Yes (Other)
  Sender: FDA-Public Use
  Company Number: SPV1-2008-2736

PATIENT
  Age: 6 Year
  Sex: Male
  Weight: 23.9 kg

DRUGS (3)
  1. ELAPRASE [Suspect]
     Indication: MUCOPOLYSACCHARIDOSIS II
     Dosage: 12 MG, 1X/WEEK, INTRAVENOUS
     Route: 042
     Dates: start: 20080821
  2. ACETAMINOPHEN [Concomitant]
  3. CHLORPHENIRAMINE MALEATE [Concomitant]

REACTIONS (5)
  - CHILLS [None]
  - INFUSION RELATED REACTION [None]
  - LIVEDO RETICULARIS [None]
  - PALLOR [None]
  - UPPER RESPIRATORY TRACT INFECTION [None]
